FAERS Safety Report 8889168 (Version 1)
Quarter: 2012Q4

REPORT INFORMATION
  Report Type: 
  Country: GB (occurrence: GB)
  Receive Date: 20121106
  Receipt Date: 20121106
  Transmission Date: 20130627
  Serious: Yes (Hospitalization)
  Sender: FDA-Public Use
  Company Number: GB-ROCHE-1138550

PATIENT
  Age: 63 Year
  Sex: Male

DRUGS (2)
  1. NAPROXEN [Suspect]
     Indication: PRODUCT USED FOR UNKNOWN INDICATION
     Route: 048
     Dates: start: 201207, end: 201208
  2. RANITIDINE [Concomitant]
     Route: 065

REACTIONS (5)
  - Faeces discoloured [Unknown]
  - Haemoglobin decreased [Unknown]
  - Melaena [Unknown]
  - Upper gastrointestinal haemorrhage [Unknown]
  - Blood urea increased [Unknown]
